FAERS Safety Report 24579064 (Version 1)
Quarter: 2024Q4

REPORT INFORMATION
  Report Type: Spontaneous
  Country: US (occurrence: US)
  Receive Date: 20241105
  Receipt Date: 20241105
  Transmission Date: 20250114
  Serious: No
  Sender: AUROBINDO
  Company Number: US-AUROBINDO-AUR-APL-2024-001637

PATIENT
  Age: 81 Year
  Sex: Female

DRUGS (13)
  1. METOPROLOL [Suspect]
     Active Substance: METOPROLOL
     Indication: Product used for unknown indication
     Dosage: UNK, RESTARTED AT A LOWER DOSAGE
     Route: 065
     Dates: start: 2023
  2. METOPROLOL [Suspect]
     Active Substance: METOPROLOL
     Dosage: UNK
     Route: 065
     Dates: end: 20231120
  3. CHLORTHALIDONE [Suspect]
     Active Substance: CHLORTHALIDONE
     Indication: Product used for unknown indication
     Dosage: UNK, RESTARTED AT A LOWER DOSAGE
     Route: 065
     Dates: start: 2023
  4. CHLORTHALIDONE [Suspect]
     Active Substance: CHLORTHALIDONE
     Dosage: UNK
     Route: 065
     Dates: end: 20231120
  5. TREPROSTINIL [Suspect]
     Active Substance: TREPROSTINIL
     Indication: Pulmonary arterial hypertension
     Dosage: 16 MICROGRAM, ONCE A DAY
     Dates: start: 202311, end: 202311
  6. TREPROSTINIL [Suspect]
     Active Substance: TREPROSTINIL
     Dosage: 32 MICROGRAM, ONCE A DAY
     Dates: start: 202311, end: 202311
  7. TREPROSTINIL [Suspect]
     Active Substance: TREPROSTINIL
     Dosage: 48 MICROGRAM, ONCE A DAY
     Dates: start: 202311
  8. TREPROSTINIL [Suspect]
     Active Substance: TREPROSTINIL
     Dosage: UNK UNK,
     Dates: start: 202311, end: 202311
  9. TYVASO DPI [Suspect]
     Active Substance: TREPROSTINIL
     Indication: Pulmonary arterial hypertension
     Dosage: 16 MICROGRAM
  10. TYVASO DPI [Suspect]
     Active Substance: TREPROSTINIL
     Dosage: 32 MICROGRAM
  11. TYVASO DPI [Suspect]
     Active Substance: TREPROSTINIL
     Dosage: 48 MICROGRAM, ONCE A DAY
  12. TYVASO DPI [Suspect]
     Active Substance: TREPROSTINIL
     Dosage: 16 MICROGRAM, FOUR TIMES/DAY
  13. PIRFENIDONE [Concomitant]
     Active Substance: PIRFENIDONE
     Indication: Product used for unknown indication
     Dosage: UNK
     Route: 065

REACTIONS (16)
  - Flushing [Not Recovered/Not Resolved]
  - Somnolence [Not Recovered/Not Resolved]
  - Oedema peripheral [Not Recovered/Not Resolved]
  - Ear pain [Unknown]
  - Ear discomfort [Unknown]
  - Hypotension [Unknown]
  - Dizziness [Unknown]
  - Cough [Unknown]
  - Hypoacusis [Unknown]
  - Middle ear effusion [Unknown]
  - Oxygen consumption increased [Unknown]
  - Heart rate increased [Unknown]
  - Dyspnoea [Unknown]
  - Dyspnoea exertional [Unknown]
  - Fatigue [Unknown]
  - Product use issue [Unknown]

NARRATIVE: CASE EVENT DATE: 20230101
